FAERS Safety Report 19002279 (Version 2)
Quarter: 2021Q1

REPORT INFORMATION
  Report Type: Report from Study
  Country: AR (occurrence: AR)
  Receive Date: 20210312
  Receipt Date: 20210327
  Transmission Date: 20210420
  Serious: Yes (Other)
  Sender: FDA-Public Use
  Company Number: NVSC2021AR052509

PATIENT
  Age: 65 Year
  Sex: Male

DRUGS (5)
  1. DIOVAN [Suspect]
     Active Substance: VALSARTAN
     Dosage: 160 MG, QD
     Route: 065
     Dates: start: 202011
  2. DIOVAN [Suspect]
     Active Substance: VALSARTAN
     Dosage: 80 MG, QD
     Route: 065
     Dates: end: 202011
  3. DIOVAN [Suspect]
     Active Substance: VALSARTAN
     Indication: PRODUCT USED FOR UNKNOWN INDICATION
     Dosage: 1 DF, QD (80 MG, START DATE: OVER 10 YEARS AGO)
     Route: 065
     Dates: end: 202009
  4. DIOVAN [Suspect]
     Active Substance: VALSARTAN
     Dosage: 1 DF, QD (160 MG)
     Route: 065
  5. DIOVAN [Suspect]
     Active Substance: VALSARTAN
     Dosage: 1 DF, QD (80 MG, START DATE: 10 YEARS AGO)
     Route: 065
     Dates: end: 202008

REACTIONS (6)
  - Arrhythmia [Not Recovered/Not Resolved]
  - Dizziness [Unknown]
  - Blood pressure increased [Recovering/Resolving]
  - Malaise [Unknown]
  - Type 1 diabetes mellitus [Recovering/Resolving]
  - Heart rate decreased [Unknown]

NARRATIVE: CASE EVENT DATE: 202008
